FAERS Safety Report 4280147-3 (Version None)
Quarter: 2004Q1

REPORT INFORMATION
  Report Type: 
  Country: None (occurrence: None)
  Receive Date: 20040126
  Receipt Date: 20040112
  Transmission Date: 20041129
  Serious: Yes (Death, Hospitalization, Other)
  Sender: FDA-Public Use
  Company Number: 2003038770

PATIENT
  Sex: Male

DRUGS (7)
  1. NEURONTIN [Suspect]
     Indication: ANALGESIC EFFECT
     Dosage: 1200 MG (TID), ORAL
     Route: 048
     Dates: start: 20000101
  2. ETHANOL (EHTANOL) [Suspect]
     Indication: ILL-DEFINED DISORDER
  3. OPIOIDS [Concomitant]
  4. FENTANYL [Concomitant]
  5. PARACETAMOL (PARACETAMOL) [Concomitant]
  6. MORPHINE [Concomitant]
  7. DICLOFENAC SODIUM [Concomitant]

REACTIONS (3)
  - DEPRESSION [None]
  - MANIA [None]
  - PSYCHOTIC DISORDER [None]
